FAERS Safety Report 19489343 (Version 1)
Quarter: 2021Q3

REPORT INFORMATION
  Report Type: Spontaneous
  Country: DE (occurrence: DE)
  Receive Date: 20210703
  Receipt Date: 20210703
  Transmission Date: 20211014
  Serious: Yes (Hospitalization)
  Sender: FDA-Public Use
  Company Number: DE-TEVA-2021-DE-1928469

PATIENT
  Age: 73 Year
  Sex: Female

DRUGS (13)
  1. BROMAZEPAM [Suspect]
     Active Substance: BROMAZEPAM
     Dosage: 6 MG, ONLY NEEDED IN THE CASE OF INSOMNIA
  2. INUVAIR [Concomitant]
     Active Substance: BECLOMETHASONE DIPROPIONATE\FORMOTEROL FUMARATE
     Dosage: 4 DOSAGE FORMS DAILY; 2?0?2?0
     Route: 055
  3. DOXEPIN?NEURAXPHARM 25MG [Concomitant]
     Dosage: 12.5 MILLIGRAM DAILY; 25 MG, 0?0?0.5?0
  4. GABAPENTIN. [Suspect]
     Active Substance: GABAPENTIN
     Dosage: 1200 MILLIGRAM DAILY; 1?0?1?0
  5. TORASEMID [Concomitant]
     Active Substance: TORSEMIDE
     Dosage: 20 MILLIGRAM DAILY; 10 MG, 2?0?0?0
  6. RAMIPRIL. [Concomitant]
     Active Substance: RAMIPRIL
     Dosage: 10 MILLIGRAM DAILY; 10 MG, 0.5?0?0.5?0
  7. BRALTUS 10MIKROGRAMM + INHALATOR [Concomitant]
     Dosage: 10 MICROGRAM DAILY; 1?0?0?0
     Route: 055
  8. METFORMIN [Concomitant]
     Active Substance: METFORMIN HYDROCHLORIDE
     Dosage: 1000 MILLIGRAM DAILY; 1?0?1?0
  9. PRAMIPEXOL [Suspect]
     Active Substance: PRAMIPEXOLE
     Dosage: 35 MILLIGRAM DAILY;  0?0?0?1
  10. PANTOPRAZOL [Concomitant]
     Active Substance: PANTOPRAZOLE SODIUM
     Dosage: 40 MILLIGRAM DAILY; 1?0?0?0
  11. IBUPROFEN. [Concomitant]
     Active Substance: IBUPROFEN
     Dosage: 600 MILLIGRAM DAILY; 1?0?0?0
  12. NEPRESOL [Concomitant]
     Dosage: 25 MILLIGRAM DAILY;  1?0?0?0
  13. VERAPAMIL AL 240 RETARD [Concomitant]
     Dosage: 240 MG, 0.5?0?0.5?0, 12MG

REACTIONS (3)
  - Product prescribing error [Unknown]
  - Fracture [Unknown]
  - Fall [Unknown]
